FAERS Safety Report 25536660 (Version 1)
Quarter: 2025Q3

REPORT INFORMATION
  Report Type: Spontaneous
  Country: IN (occurrence: IN)
  Receive Date: 20250709
  Receipt Date: 20250709
  Transmission Date: 20251020
  Serious: Yes (Death, Hospitalization, Other)
  Sender: NOVITIUM PHARMA
  Company Number: IN-NOVITIUMPHARMA-2025INNVP01555

PATIENT
  Age: 5 Day
  Sex: Male

DRUGS (3)
  1. SILDENAFIL CITRATE [Suspect]
     Active Substance: SILDENAFIL CITRATE
     Indication: Product used for unknown indication
     Route: 048
  2. CEFOTAXIME [Concomitant]
     Active Substance: CEFOTAXIME SODIUM
     Indication: Product used for unknown indication
     Route: 042
  3. AMIKACIN [Concomitant]
     Active Substance: AMIKACIN
     Indication: Product used for unknown indication
     Route: 042

REACTIONS (1)
  - Shock [Fatal]
